FAERS Safety Report 4729005-8 (Version None)
Quarter: 2005Q3

REPORT INFORMATION
  Report Type: 
  Country: None (occurrence: None)
  Receive Date: 20050729
  Receipt Date: 20050106
  Transmission Date: 20060218
  Serious: No
  Sender: FDA-Public Use
  Company Number: US-GLAXOSMITHKLINE-A0539702A

PATIENT
  Age: 39 Year
  Sex: Female

DRUGS (3)
  1. IMITREX [Suspect]
     Indication: MIGRAINE
     Dosage: 100MG AS REQUIRED
     Route: 048
     Dates: start: 20041101
  2. BIRTH CONTROL PILLS [Concomitant]
  3. BETA BLOCKER [Concomitant]

REACTIONS (4)
  - HYPOAESTHESIA [None]
  - NASAL DISCOMFORT [None]
  - NAUSEA [None]
  - PARAESTHESIA ORAL [None]
